FAERS Safety Report 10629125 (Version 1)
Quarter: 2014Q4

REPORT INFORMATION
  Report Type: Spontaneous
  Country: US (occurrence: US)
  Receive Date: 20141205
  Receipt Date: 20141205
  Transmission Date: 20150529
  Serious: No
  Sender: FDA-Public Use
  Company Number: US-BRISTOL-MYERS SQUIBB COMPANY-20683462

PATIENT
  Age: 66 Year
  Sex: Male

DRUGS (4)
  1. METFORMIN HCL [Suspect]
     Active Substance: METFORMIN HYDROCHLORIDE
  2. GLIMEPIRIDE. [Suspect]
     Active Substance: GLIMEPIRIDE
     Route: 058
  3. BYETTA [Suspect]
     Active Substance: EXENATIDE
     Route: 058
  4. GLIMEPIRIDE. [Suspect]
     Active Substance: GLIMEPIRIDE
     Route: 058

REACTIONS (3)
  - Underdose [Not Recovered/Not Resolved]
  - Blood glucose increased [Not Recovered/Not Resolved]
  - Injection site haemorrhage [Not Recovered/Not Resolved]

NARRATIVE: CASE EVENT DATE: 201403
